FAERS Safety Report 4576842-9 (Version None)
Quarter: 2005Q1

REPORT INFORMATION
  Report Type: 
  Country: None (occurrence: None)
  Receive Date: 20050210
  Receipt Date: 20050131
  Transmission Date: 20050727
  Serious: Yes (Other)
  Sender: FDA-Public Use
  Company Number: GRWYE382931JAN05

PATIENT
  Age: 28 Year
  Sex: Female

DRUGS (2)
  1. ENBREL [Suspect]
     Indication: ANKYLOSING SPONDYLITIS
     Route: 058
     Dates: start: 20041201
  2. METHOTREXATE [Suspect]
     Dosage: UNSPECIFIED
     Route: 048
     Dates: end: 20050101

REACTIONS (1)
  - TRANSAMINASES INCREASED [None]
